FAERS Safety Report 16993950 (Version 3)
Quarter: 2020Q2

REPORT INFORMATION
  Report Type: Report from Study
  Country: US (occurrence: US)
  Receive Date: 20191105
  Receipt Date: 20200406
  Transmission Date: 20200713
  Serious: Yes (Hospitalization)
  Sender: FDA-Public Use
  Company Number: PHHO2019US007828

PATIENT
  Age: 64 Year
  Sex: Male
  Weight: 95.3 kg

DRUGS (17)
  1. POSACONAZOLE [Concomitant]
     Active Substance: POSACONAZOLE
     Dosage: UNK
     Route: 065
     Dates: start: 20190725, end: 20190726
  2. IBUPROFEN. [Concomitant]
     Active Substance: IBUPROFEN
     Indication: PRODUCT USED FOR UNKNOWN INDICATION
     Dosage: UNK
     Route: 065
     Dates: start: 20160907
  3. LEVOFLOXACIN. [Concomitant]
     Active Substance: LEVOFLOXACIN
     Dosage: UNK
     Route: 065
     Dates: start: 20190725, end: 20190726
  4. GABAPENTIN. [Concomitant]
     Active Substance: GABAPENTIN
     Indication: LUMBOSACRAL PLEXOPATHY
     Dosage: UNK
     Route: 065
     Dates: start: 20190702
  5. ACYCLOVIR. [Concomitant]
     Active Substance: ACYCLOVIR
     Indication: CYTOKINE RELEASE SYNDROME
     Dosage: UNK
     Route: 065
     Dates: start: 20190725, end: 20190726
  6. DULOXETINE. [Concomitant]
     Active Substance: DULOXETINE
     Indication: CYTOKINE RELEASE SYNDROME
     Dosage: UNK
     Route: 065
     Dates: start: 20190710
  7. DULOXETINE. [Concomitant]
     Active Substance: DULOXETINE
     Dosage: UNK
     Route: 065
     Dates: start: 20190725, end: 20190726
  8. GABAPENTIN. [Concomitant]
     Active Substance: GABAPENTIN
     Dosage: UNK
     Route: 065
     Dates: start: 20190325
  9. OXYCODONE [Concomitant]
     Active Substance: OXYCODONE
     Indication: CYTOKINE RELEASE SYNDROME
     Dosage: UNK
     Route: 065
     Dates: start: 20190711
  10. POSACONAZOLE [Concomitant]
     Active Substance: POSACONAZOLE
     Indication: CYTOKINE RELEASE SYNDROME
     Dosage: UNK
     Route: 065
     Dates: start: 20190711
  11. OXYCODONE [Concomitant]
     Active Substance: OXYCODONE
     Dosage: UNK
     Route: 065
     Dates: start: 20190725, end: 20190726
  12. KYMRIAH [Suspect]
     Active Substance: TISAGENLECLEUCEL
     Indication: LYMPHOMA
     Dosage: 2.0X10^8 ONCE/SINGLE
     Route: 042
     Dates: start: 20190723
  13. ACYCLOVIR. [Concomitant]
     Active Substance: ACYCLOVIR
     Indication: GENERAL PHYSICAL CONDITION
     Dosage: UNK
     Route: 065
     Dates: start: 20190709
  14. ALLOPURINOL. [Concomitant]
     Active Substance: ALLOPURINOL
     Indication: CYTOKINE RELEASE SYNDROME
     Dosage: UNK
     Route: 065
     Dates: start: 20190725
  15. DULOXETINE. [Concomitant]
     Active Substance: DULOXETINE
     Dosage: UNK
     Route: 065
     Dates: start: 20190610
  16. LEVOFLOXACIN. [Concomitant]
     Active Substance: LEVOFLOXACIN
     Indication: CYTOKINE RELEASE SYNDROME
     Dosage: UNK
     Route: 065
     Dates: start: 20190709
  17. ALLOPURINOL. [Concomitant]
     Active Substance: ALLOPURINOL
     Indication: GENERAL PHYSICAL CONDITION
     Dosage: UNK
     Route: 065
     Dates: start: 20190709, end: 20190806

REACTIONS (1)
  - Cytokine release syndrome [Recovered/Resolved]

NARRATIVE: CASE EVENT DATE: 20190725
